FAERS Safety Report 8458595 (Version 2)
Quarter: 2012Q4

REPORT INFORMATION
  Report Type: Spontaneous
  Country: None (occurrence: None)
  Receive Date: 20120308
  Receipt Date: 20120917
  Transmission Date: 20130627
  Serious: Yes (Disabling, Other)
  Sender: FDA-Public Use
  Company Number: AUR-APL-2012-01224

PATIENT
  Age: 56 Year
  Sex: Female
  Weight: 90 kg

DRUGS (3)
  1. SIMVASTATIN [Suspect]
     Indication: CARDIOVASCULAR EVENT PROPHYLAXIS
     Route: 048
     Dates: end: 201202
  2. SIMVASTATIN [Suspect]
     Indication: HYPERTENSION
     Route: 048
     Dates: end: 201202
  3. BENDROFLUAZIDE (BENDROFLUMETHIAZIDE) [Concomitant]

REACTIONS (1)
  - Ear congestion [None]
